FAERS Safety Report 9649703 (Version 1)
Quarter: 2013Q4

REPORT INFORMATION
  Report Type: Spontaneous
  Country: GB (occurrence: GB)
  Receive Date: 20131028
  Receipt Date: 20131028
  Transmission Date: 20140711
  Serious: Yes (Disabling, Other)
  Sender: FDA-Public Use
  Company Number: PHHY2013GB118407

PATIENT
  Age: 56 Year
  Sex: Female
  Weight: 62 kg

DRUGS (1)
  1. TRAMADOL [Suspect]
     Indication: POSTOPERATIVE ANALGESIA
     Dosage: 50 MG, QID
     Route: 048
     Dates: start: 20130909, end: 20130910

REACTIONS (5)
  - Dehydration [Recovered/Resolved]
  - Malaise [Unknown]
  - Somnolence [Recovered/Resolved]
  - Vomiting [Recovered/Resolved]
  - Headache [Recovered/Resolved]
